FAERS Safety Report 24001256 (Version 2)
Quarter: 2024Q4

REPORT INFORMATION
  Report Type: Spontaneous
  Country: CA (occurrence: CA)
  Receive Date: 20240621
  Receipt Date: 20241203
  Transmission Date: 20250115
  Serious: Yes (Other)
  Sender: ALEXION PHARMACEUTICALS
  Company Number: 2024A141888

PATIENT
  Age: 69 Year

DRUGS (13)
  1. SYMBICORT [Suspect]
     Active Substance: BUDESONIDE\FORMOTEROL FUMARATE DIHYDRATE
     Indication: Product used for unknown indication
  2. SYMBICORT [Suspect]
     Active Substance: BUDESONIDE\FORMOTEROL FUMARATE DIHYDRATE
  3. SYMBICORT [Suspect]
     Active Substance: BUDESONIDE\FORMOTEROL FUMARATE DIHYDRATE
  4. SYMBICORT [Suspect]
     Active Substance: BUDESONIDE\FORMOTEROL FUMARATE DIHYDRATE
  5. CANDESARTAN [Suspect]
     Active Substance: CANDESARTAN
     Indication: Product used for unknown indication
  6. CANDESARTAN [Suspect]
     Active Substance: CANDESARTAN
  7. CANDESARTAN [Suspect]
     Active Substance: CANDESARTAN
  8. CANDESARTAN [Suspect]
     Active Substance: CANDESARTAN
  9. AZD-1222 [Suspect]
     Active Substance: AZD-1222
     Indication: COVID-19 immunisation
  10. AZD-1222 [Suspect]
     Active Substance: AZD-1222
  11. AZD-1222 [Suspect]
     Active Substance: AZD-1222
  12. AZD-1222 [Suspect]
     Active Substance: AZD-1222
  13. TOZINAMERAN [Suspect]
     Active Substance: TOZINAMERAN
     Indication: COVID-19 immunisation

REACTIONS (2)
  - COVID-19 [Unknown]
  - Vaccination failure [Unknown]
